FAERS Safety Report 8177655-1 (Version None)
Quarter: 2012Q1

REPORT INFORMATION
  Report Type: 
  Country: None (occurrence: None)
  Receive Date: 20120301
  Receipt Date: 20120224
  Transmission Date: 20120608
  Serious: Yes (Other)
  Sender: FDA-Public Use
  Company Number: PHEH2012US004690

PATIENT
  Sex: Female

DRUGS (1)
  1. RECLAST [Suspect]
     Dosage: UNK UKN, UNK
     Route: 042
     Dates: start: 20120201

REACTIONS (6)
  - ARTHRALGIA [None]
  - OEDEMA PERIPHERAL [None]
  - BURNING SENSATION [None]
  - LOCAL SWELLING [None]
  - ASTHENIA [None]
  - BONE PAIN [None]
